FAERS Safety Report 9365261 (Version 1)
Quarter: 2013Q2

REPORT INFORMATION
  Report Type: Spontaneous
  Country: TW (occurrence: TW)
  Receive Date: 20130625
  Receipt Date: 20130625
  Transmission Date: 20140414
  Serious: Yes (Hospitalization)
  Sender: FDA-Public Use
  Company Number: TW-ROCHE-1240383

PATIENT
  Age: 56 Year
  Sex: Male

DRUGS (6)
  1. MABTHERA [Suspect]
     Indication: RHEUMATOID ARTHRITIS
     Route: 065
     Dates: start: 20120217
  2. ARCOXIA [Concomitant]
     Route: 048
     Dates: start: 20130429
  3. METHOTREXATE [Concomitant]
     Route: 048
     Dates: start: 20130429
  4. CEPHALEXIN [Concomitant]
     Route: 048
     Dates: start: 20130520, end: 20130522
  5. FOSAMAX PLUS [Concomitant]
     Route: 048
     Dates: start: 20130429
  6. SALAZOPYRIN [Concomitant]
     Route: 048
     Dates: start: 20130419

REACTIONS (1)
  - Lip and/or oral cavity cancer [Unknown]
